FAERS Safety Report 9266779 (Version 2)
Quarter: 2013Q3

REPORT INFORMATION
  Report Type: Spontaneous
  Country: US (occurrence: US)
  Receive Date: 20130502
  Receipt Date: 20130813
  Transmission Date: 20140515
  Serious: Yes (Hospitalization)
  Sender: FDA-Public Use
  Company Number: US-BAYER-2013-052930

PATIENT
  Age: 32 Year
  Sex: Female

DRUGS (4)
  1. YAZ [Suspect]
     Dosage: UNK
     Dates: start: 20040601, end: 20080902
  2. DILAUDID [Concomitant]
  3. PERCOCET [Concomitant]
  4. COMPAZINE [Concomitant]
     Dosage: AS NEEDED

REACTIONS (12)
  - Superior sagittal sinus thrombosis [None]
  - Transverse sinus thrombosis [None]
  - Headache [None]
  - Nausea [None]
  - Vomiting [None]
  - Pain [None]
  - Injury [None]
  - General physical health deterioration [None]
  - Anxiety [None]
  - Emotional distress [None]
  - Anhedonia [None]
  - Pain [None]
